APPROVED DRUG PRODUCT: INTROVALE
Active Ingredient: ETHINYL ESTRADIOL; LEVONORGESTREL
Strength: 0.03MG;0.15MG
Dosage Form/Route: TABLET;ORAL
Application: A079064 | Product #001 | TE Code: AB
Applicant: XIROMED PHARMA ESPANA SL
Approved: Sep 27, 2010 | RLD: No | RS: No | Type: RX